FAERS Safety Report 8866055 (Version 4)
Quarter: 2013Q1

REPORT INFORMATION
  Report Type: Spontaneous
  Country: DE (occurrence: SE)
  Receive Date: 20121025
  Receipt Date: 20130325
  Transmission Date: 20140127
  Serious: Yes (Hospitalization, Other)
  Sender: FDA-Public Use
  Company Number: SE-FRI-1000039753

PATIENT
  Sex: Male
  Weight: 60 kg

DRUGS (1)
  1. ROFLUMILAST [Suspect]
     Indication: CHRONIC OBSTRUCTIVE PULMONARY DISEASE
     Dosage: 500 MCG
     Route: 048
     Dates: start: 20110613, end: 20110628

REACTIONS (4)
  - Condition aggravated [Recovered/Resolved]
  - Increased bronchial secretion [Recovered/Resolved]
  - Decreased appetite [Recovered/Resolved]
  - Sleep disorder [Recovered/Resolved]
